FAERS Safety Report 9508430 (Version 1)
Quarter: 2013Q3

REPORT INFORMATION
  Report Type: Spontaneous
  Country: US (occurrence: US)
  Receive Date: 20130909
  Receipt Date: 20130909
  Transmission Date: 20140515
  Serious: Yes (Life-Threatening)
  Sender: FDA-Public Use
  Company Number: US-ROXANE LABORATORIES, INC.-2013-RO-01489RO

PATIENT
  Age: 18 Day
  Sex: Male
  Weight: 4 kg

DRUGS (1)
  1. FLECAINIDE [Suspect]
     Indication: SUPRAVENTRICULAR TACHYCARDIA
     Route: 048

REACTIONS (3)
  - Drug dispensing error [Recovered/Resolved]
  - Accidental overdose [Recovered/Resolved]
  - Toxicity to various agents [Recovered/Resolved]
